FAERS Safety Report 4871148-2 (Version None)
Quarter: 2005Q4

REPORT INFORMATION
  Report Type: 
  Country: None (occurrence: None)
  Receive Date: 20051229
  Receipt Date: 20051220
  Transmission Date: 20060501
  Serious: Yes (Life-Threatening)
  Sender: FDA-Public Use
  Company Number: 05H-056-0304248-00

PATIENT
  Age: 32 Year
  Sex: Female
  Weight: 62 kg

DRUGS (4)
  1. PENTOTHAL INJECTION (THIOPENTAL SODIUM) (THIOPENTAL SODIUM) [Suspect]
     Indication: ANAESTHESIA
     Dosage: INTRAVENOUS
     Route: 042
     Dates: start: 20051012, end: 20051012
  2. SUXAMETHONIUM (SUXAMETHONIUM) [Suspect]
     Indication: ANAESTHESIA
     Dosage: INTRAVENOUS
     Route: 042
     Dates: start: 20051012, end: 20051012
  3. IODINE (IODINE) [Concomitant]
  4. CIMETIDINE [Concomitant]

REACTIONS (3)
  - ANAESTHETIC COMPLICATION [None]
  - ANAPHYLACTIC SHOCK [None]
  - MUSCLE SPASMS [None]
